FAERS Safety Report 4341221-6 (Version None)
Quarter: 2004Q1

REPORT INFORMATION
  Report Type: 
  Country: None (occurrence: None)
  Receive Date: 20040329
  Receipt Date: 20040224
  Transmission Date: 20041129
  Serious: No
  Sender: FDA-Public Use
  Company Number: 04P-163-0251385-00

PATIENT
  Age: 53 Year
  Sex: Male
  Weight: 102.0593 kg

DRUGS (5)
  1. HUMIRA [Suspect]
     Indication: RHEUMATOID ARTHRITIS
     Dosage: 40 MG, 1 IN 2 WK, SUBCUTANEOUS
     Route: 058
     Dates: start: 20031201
  2. METHOTREXATE SODIUM [Concomitant]
  3. ROFECOXIB [Concomitant]
  4. OXYCOCET [Concomitant]
  5. UNSPECIFIED STEROID [Concomitant]

REACTIONS (1)
  - DRUG INEFFECTIVE [None]
